FAERS Safety Report 19516959 (Version 1)
Quarter: 2021Q3

REPORT INFORMATION
  Report Type: Spontaneous
  Country: US (occurrence: US)
  Receive Date: 20210711
  Receipt Date: 20210711
  Transmission Date: 20211014
  Serious: No
  Sender: FDA-Public Use
  Company Number: US-AMGEN-USA-20200405853

PATIENT
  Age: 57 Year
  Sex: Female

DRUGS (3)
  1. OTEZLA [Suspect]
     Active Substance: APREMILAST
     Indication: PSORIASIS
     Dosage: 30 MILLIGRAM, BID
     Route: 048
     Dates: start: 20181206
  2. OTEZLA [Suspect]
     Active Substance: APREMILAST
     Dosage: 30 MILLIGRAM, BID
     Route: 048
     Dates: start: 20200717
  3. OTEZLA [Suspect]
     Active Substance: APREMILAST
     Indication: DISEASE COMPLICATION
     Dosage: 30 MILLIGRAM, QD
     Route: 048

REACTIONS (4)
  - Intentional product misuse [Not Recovered/Not Resolved]
  - Therapy non-responder [Not Recovered/Not Resolved]
  - Product dose omission issue [Not Recovered/Not Resolved]
  - Psoriasis [Not Recovered/Not Resolved]
